FAERS Safety Report 22203845 (Version 1)
Quarter: 2023Q2

REPORT INFORMATION
  Report Type: Spontaneous
  Country: ES (occurrence: ES)
  Receive Date: 20230412
  Receipt Date: 20230412
  Transmission Date: 20230721
  Serious: Yes (Other)
  Sender: FDA-Public Use
  Company Number: ES-PURDUE-USA-2023-0301175

PATIENT
  Age: 87 Year
  Sex: Female

DRUGS (12)
  1. OXYCODONE HYDROCHLORIDE [Suspect]
     Active Substance: OXYCODONE HYDROCHLORIDE
     Indication: Headache
     Dosage: 10.0 MG C/6 HOURS
     Route: 048
     Dates: start: 20230223, end: 20230303
  2. OXYCODONE HYDROCHLORIDE [Suspect]
     Active Substance: OXYCODONE HYDROCHLORIDE
     Indication: Headache
     Dosage: 10.0 MG DECE
     Route: 048
     Dates: start: 20230223, end: 20230303
  3. AMLODIPINE BESYLATE [Concomitant]
     Active Substance: AMLODIPINE BESYLATE
     Indication: Essential hypertension
     Dosage: 5.0 MG CE
     Route: 048
     Dates: start: 20230223
  4. FUROSEMIDE [Concomitant]
     Active Substance: FUROSEMIDE
     Indication: Atrial fibrillation
     Dosage: 40.0 MG DE
     Route: 048
     Dates: start: 20211219
  5. DULOXETINE [Concomitant]
     Active Substance: DULOXETINE
     Indication: Osteoarthritis
     Dosage: 30.0 MG C/24 H
     Route: 048
     Dates: start: 20160126
  6. ELIQUIS [Concomitant]
     Active Substance: APIXABAN
     Indication: Atrial fibrillation
     Dosage: 2.5 MG C/12 H
     Route: 048
     Dates: start: 20210930
  7. OMEPRAZOLE [Concomitant]
     Active Substance: OMEPRAZOLE
     Indication: Osteoarthritis
     Dosage: 20.0 MG A-DE
     Route: 048
     Dates: start: 20130212
  8. TRAMADOL CINFA [Concomitant]
     Indication: Pain
     Dosage: 100.0 MG DECOCE
     Route: 048
     Dates: start: 20230124
  9. LOSARTAN POTASSIUM [Concomitant]
     Active Substance: LOSARTAN POTASSIUM
     Indication: Wound
     Dosage: 25.0 MG DE
     Route: 048
     Dates: start: 20220203
  10. BISOPROLOL [Concomitant]
     Active Substance: BISOPROLOL
     Indication: Atrial fibrillation
     Dosage: 2.5 MG DE
     Route: 048
     Dates: start: 20201106
  11. PARACETAMOL CINFA [Concomitant]
     Indication: Osteoarthritis
     Dosage: 1.0 G DECOCE
     Route: 048
     Dates: start: 20211219
  12. ZOLPIDEM [Concomitant]
     Active Substance: ZOLPIDEM TARTRATE
     Indication: Insomnia
     Dosage: 10.0 MG C/24 H NOC
     Route: 048
     Dates: start: 20200812

REACTIONS (2)
  - Fall [Recovered/Resolved with Sequelae]
  - Hallucination [Recovered/Resolved with Sequelae]

NARRATIVE: CASE EVENT DATE: 20230303
